FAERS Safety Report 13600507 (Version 1)
Quarter: 2017Q2

REPORT INFORMATION
  Report Type: Spontaneous
  Country: US (occurrence: US)
  Receive Date: 20170531
  Receipt Date: 20170531
  Transmission Date: 20170830
  Serious: Yes (Disabling)
  Sender: FDA-Public Use
  Company Number: None

PATIENT
  Age: 47 Year
  Sex: Male
  Weight: 119.2 kg

DRUGS (2)
  1. AMLODIPINE [Concomitant]
     Active Substance: AMLODIPINE BESYLATE
  2. METHLPREDNISOLONE [Suspect]
     Active Substance: METHYLPREDNISOLONE
     Indication: METATARSALGIA
     Dosage: QUANTITY:21 TABLET(S);OTHER FREQUENCY:6-5-4-3-2-1;?
     Route: 048
     Dates: start: 20170528, end: 20170531

REACTIONS (4)
  - Flushing [None]
  - Arrhythmia [None]
  - Feeling jittery [None]
  - Joint crepitation [None]

NARRATIVE: CASE EVENT DATE: 20170531
